FAERS Safety Report 5975565-9 (Version None)
Quarter: 2008Q4

REPORT INFORMATION
  Report Type: 
  Country: None (occurrence: None)
  Receive Date: 20081202
  Receipt Date: 20081113
  Transmission Date: 20090506
  Serious: Yes (Other)
  Sender: FDA-Public Use
  Company Number: BR-AVENTIS-200819740GDDC

PATIENT
  Age: 69 Year
  Sex: Male
  Weight: 65 kg

DRUGS (8)
  1. LANTUS [Suspect]
     Route: 058
     Dates: start: 20080209
  2. OPTIPEN (INSULIN PUMP) [Suspect]
     Route: 058
     Dates: start: 20080209
  3. COREG [Concomitant]
     Dosage: DOSE QUANTITY: 1
     Route: 048
     Dates: start: 20010101
  4. RENITEC                            /00574901/ [Concomitant]
     Dosage: DOSE QUANTITY: 1
     Route: 048
     Dates: start: 20080401
  5. BENERVA [Concomitant]
     Dosage: DOSE QUANTITY: 1.5
     Route: 048
     Dates: start: 20010101
  6. ZYLORIC [Concomitant]
     Indication: RENAL IMPAIRMENT
     Dosage: DOSE QUANTITY: 1
     Route: 048
     Dates: start: 20080401
  7. COMPLEXO B                         /01753401/ [Concomitant]
     Indication: VITAMIN SUPPLEMENTATION
     Dosage: DOSE QUANTITY: 1
     Route: 048
     Dates: start: 20080401
  8. NUTRITIONAL SUPPLEMENT [Concomitant]
     Indication: DIABETIC RETINOPATHY
     Dosage: DOSE QUANTITY: 1
     Route: 048
     Dates: start: 20080101

REACTIONS (4)
  - DIZZINESS [None]
  - HYPOTENSION [None]
  - PRODUCT QUALITY ISSUE [None]
  - VISUAL IMPAIRMENT [None]
